FAERS Safety Report 21640308 (Version 1)
Quarter: 2022Q4

REPORT INFORMATION
  Report Type: Spontaneous
  Country: CN (occurrence: CN)
  Receive Date: 20221124
  Receipt Date: 20221124
  Transmission Date: 20230113
  Serious: Yes (Other)
  Sender: FDA-Public Use
  Company Number: CN-002147023-NVSC2022CN257065

PATIENT
  Age: 72 Year
  Sex: Female

DRUGS (1)
  1. VORICONAZOLE [Suspect]
     Active Substance: VORICONAZOLE
     Indication: Fungal infection
     Dosage: 0.200 G, BID
     Route: 048
     Dates: start: 20221029, end: 20221108

REACTIONS (2)
  - Hallucination [Recovering/Resolving]
  - Dyschromatopsia [Recovering/Resolving]

NARRATIVE: CASE EVENT DATE: 20221029
